FAERS Safety Report 26196069 (Version 1)
Quarter: 2025Q4

REPORT INFORMATION
  Report Type: Spontaneous
  Country: KR (occurrence: KR)
  Receive Date: 20251224
  Receipt Date: 20251224
  Transmission Date: 20260118
  Serious: Yes (Other)
  Sender: Kenvue
  Company Number: KR-KENVUE-20251207334

PATIENT
  Age: 5 Decade
  Weight: 55 kg

DRUGS (1)
  1. TYLENOL 8HR [Suspect]
     Active Substance: ACETAMINOPHEN
     Indication: Acute myeloid leukaemia
     Dosage: 650 MILLIGRAM, AS NEEDED ( 650MG / 1{AS NECESSARY})
     Route: 065

REACTIONS (1)
  - Hypotension [Recovered/Resolved]
